FAERS Safety Report 7246757-6 (Version None)
Quarter: 2011Q1

REPORT INFORMATION
  Report Type: 
  Country: None (occurrence: None)
  Receive Date: 20110127
  Receipt Date: 20110121
  Transmission Date: 20110831
  Serious: Yes (Other)
  Sender: FDA-Public Use
  Company Number: US-PFIZER INC-2010141023

PATIENT
  Sex: Female

DRUGS (1)
  1. LYRICA [Suspect]
     Indication: DIABETES MELLITUS
     Dosage: 50 MG, 3X/DAY
     Route: 048
     Dates: start: 20101101

REACTIONS (3)
  - PAIN [None]
  - IMPAIRED HEALING [None]
  - OEDEMA PERIPHERAL [None]
